FAERS Safety Report 5981803-9 (Version None)
Quarter: 2008Q4

REPORT INFORMATION
  Report Type: 
  Country: None (occurrence: None)
  Receive Date: 20081205
  Receipt Date: 20081125
  Transmission Date: 20090506
  Serious: Yes (Death, Life-Threatening)
  Sender: FDA-Public Use
  Company Number: US-BAXTER-2008BH013243

PATIENT
  Age: 77 Year
  Sex: Female

DRUGS (7)
  1. HEPARIN SODIUM INJECTION [Suspect]
     Indication: PROPHYLAXIS
     Route: 042
  2. LIDOCAINE AND EPINEPHRINE [Concomitant]
     Indication: DRUG USE FOR UNKNOWN INDICATION
     Route: 065
  3. PROPOFOL [Concomitant]
     Indication: DRUG USE FOR UNKNOWN INDICATION
     Route: 065
  4. FENTANYL-100 [Concomitant]
     Indication: DRUG USE FOR UNKNOWN INDICATION
     Route: 065
  5. NITROUS OXIDE [Concomitant]
     Indication: ANAESTHESIA
     Route: 055
  6. OXYGEN [Concomitant]
     Indication: ANAESTHESIA
     Route: 055
  7. ISOFLURANE [Concomitant]
     Indication: ANAESTHESIA
     Route: 055

REACTIONS (2)
  - HEPARIN-INDUCED THROMBOCYTOPENIA [None]
  - VASCULAR GRAFT OCCLUSION [None]
